FAERS Safety Report 11088439 (Version 8)
Quarter: 2016Q4

REPORT INFORMATION
  Report Type: Report from Study
  Country: JP (occurrence: JP)
  Receive Date: 20150504
  Receipt Date: 20161223
  Transmission Date: 20170206
  Serious: Yes (Hospitalization)
  Sender: FDA-Public Use
  Company Number: JP-ROCHE-1553789

PATIENT
  Age: 80 Year
  Sex: Female
  Weight: 37 kg

DRUGS (52)
  1. TRASTUZUMAB [Suspect]
     Active Substance: TRASTUZUMAB
     Indication: BREAST CANCER
     Route: 041
     Dates: start: 20150304, end: 20150304
  2. PERTUZUMAB [Suspect]
     Active Substance: PERTUZUMAB
     Indication: BREAST CANCER
     Route: 041
     Dates: start: 20150304, end: 20150304
  3. PERTUZUMAB [Suspect]
     Active Substance: PERTUZUMAB
     Indication: BREAST CANCER
     Route: 041
     Dates: start: 20150603, end: 20160810
  4. DENOTAS [Concomitant]
     Active Substance: CALCIUM CARBONATE\CHOLECALCIFEROL\MAGNESIUM CARBONATE
     Dosage: DOSAGE IS UNCERTAIN.
     Route: 048
     Dates: start: 20150327, end: 20150409
  5. ZANTAC [Concomitant]
     Active Substance: RANITIDINE HYDROCHLORIDE
     Dosage: DOSAGE IS UNCERTAIN.
     Route: 065
     Dates: start: 20150305, end: 20150422
  6. ACETOKEEP [Concomitant]
     Dosage: DOSAGE IS UNCERTAIN.
     Route: 065
     Dates: start: 20150314, end: 20150316
  7. LENDORMIN D [Concomitant]
     Active Substance: BROTIZOLAM
     Dosage: DOSAGE IS UNCERTAIN.
     Route: 065
     Dates: start: 20150304, end: 20150305
  8. HIRUDOID (HEPARINOIDS) [Concomitant]
     Dosage: DOSAGE IS UNCERTAIN.
     Route: 003
     Dates: start: 20150422, end: 20151228
  9. SHINLUCK [Concomitant]
     Active Substance: SODIUM PICOSULFATE
     Dosage: DOSAGE IS UNCERTAIN.
     Route: 048
     Dates: start: 20150624, end: 20151228
  10. PERTUZUMAB [Suspect]
     Active Substance: PERTUZUMAB
     Indication: BREAST CANCER
     Route: 041
     Dates: start: 20150330, end: 20150422
  11. DOCETAXEL. [Suspect]
     Active Substance: DOCETAXEL
     Indication: BREAST CANCER
     Route: 041
     Dates: start: 20150330, end: 20150422
  12. CRESTOR [Concomitant]
     Active Substance: ROSUVASTATIN CALCIUM
     Dosage: .
     Route: 048
     Dates: start: 20150402, end: 20150805
  13. RESTAMIN [Concomitant]
     Active Substance: DIPHENHYDRAMINE
     Dosage: DOSAGE IS UNCERTAIN.
     Route: 065
     Dates: start: 20150305, end: 20150422
  14. VITAMIN C [Concomitant]
     Active Substance: ASCORBIC ACID
     Dosage: DOSAGE IS UNCERTAIN.
     Route: 065
     Dates: start: 20150501, end: 20150507
  15. LANSOPRAZOLE. [Concomitant]
     Active Substance: LANSOPRAZOLE
     Dosage: DOSAGE IS UNCERTAIN.
     Route: 048
     Dates: start: 20150501, end: 20150503
  16. LANSOPRAZOLE. [Concomitant]
     Active Substance: LANSOPRAZOLE
     Dosage: DOSAGE IS UNCERTAIN.
     Route: 048
     Dates: start: 20150512, end: 20150603
  17. DOCETAXEL. [Suspect]
     Active Substance: DOCETAXEL
     Indication: BREAST CANCER
     Route: 041
     Dates: start: 20150305, end: 20150305
  18. DEXART [Concomitant]
     Active Substance: DEXAMETHASONE SODIUM PHOSPHATE
     Dosage: DOSAGE IS UNCERTAIN.
     Route: 065
     Dates: start: 20150311, end: 20150311
  19. ACETOKEEP [Concomitant]
     Dosage: DOSAGE IS UNCERTAIN.
     Route: 065
     Dates: start: 20150311, end: 20150311
  20. CARBOCISTEINE [Concomitant]
     Active Substance: CARBOCYSTEINE
     Dosage: DOSAGE IS UNCERTAIN.
     Route: 048
     Dates: start: 20150503, end: 20150514
  21. PRIMPERAN [Concomitant]
     Active Substance: METOCLOPRAMIDE HYDROCHLORIDE
     Dosage: DOSAGE IS UNCERTAIN.
     Route: 048
     Dates: start: 20150401, end: 20150501
  22. AZUNOL [Concomitant]
     Active Substance: SODIUM GUALENATE
     Dosage: AT THE RIGHT TIME
     Route: 003
     Dates: start: 20150218, end: 20151228
  23. LUNESTA [Concomitant]
     Active Substance: ESZOPICLONE
     Dosage: DOSAGE IS UNCERTAIN.
     Route: 048
     Dates: start: 20150306, end: 20150306
  24. TRASTUZUMAB [Suspect]
     Active Substance: TRASTUZUMAB
     Indication: BREAST CANCER
     Route: 041
     Dates: start: 20150330, end: 20150422
  25. PRIMPERAN [Concomitant]
     Active Substance: METOCLOPRAMIDE HYDROCHLORIDE
     Dosage: DOSAGE IS UNCERTAIN.
     Route: 048
     Dates: start: 20150311, end: 20150311
  26. MAGMITT [Concomitant]
     Active Substance: MAGNESIUM OXIDE
     Dosage: AT THE OBSTIPATION
     Route: 048
     Dates: start: 20150308, end: 20150314
  27. VITAMEDIN (JAPAN) [Concomitant]
     Dosage: DOSAGE IS UNCERTAIN.
     Route: 065
     Dates: start: 20150314, end: 20150323
  28. VITAMEDIN (JAPAN) [Concomitant]
     Dosage: DOSAGE IS UNCERTAIN.
     Route: 065
     Dates: start: 20150501, end: 20150507
  29. PROEMEND [Concomitant]
     Active Substance: FOSAPREPITANT
     Dosage: DOSAGE IS UNCERTAIN.
     Route: 065
     Dates: start: 20150330, end: 20150330
  30. ALOXI [Concomitant]
     Active Substance: PALONOSETRON HYDROCHLORIDE
     Dosage: DOSAGE IS UNCERTAIN.
     Route: 065
     Dates: start: 20150330, end: 20150330
  31. CARBOCISTEINE [Concomitant]
     Active Substance: CARBOCYSTEINE
     Dosage: DOSAGE IS UNCERTAIN.
     Route: 048
     Dates: start: 20151225, end: 20160113
  32. NEOSTELIN GREEN [Concomitant]
     Dosage: DOSAGE IS UNCERTAIN.
     Route: 049
     Dates: start: 20150408, end: 20150415
  33. TERPERAN [Concomitant]
     Active Substance: METOCLOPRAMIDE HYDROCHLORIDE
     Dosage: DOSAGE IS UNCERTAIN.
     Route: 065
     Dates: start: 20160810, end: 20160810
  34. TRASTUZUMAB [Suspect]
     Active Substance: TRASTUZUMAB
     Indication: BREAST CANCER
     Route: 041
     Dates: start: 20150603, end: 20160810
  35. PRIMPERAN [Concomitant]
     Active Substance: METOCLOPRAMIDE HYDROCHLORIDE
     Dosage: AT THE VOMITURITION
     Route: 048
     Dates: start: 20150308, end: 20150314
  36. PRIMPERAN [Concomitant]
     Active Substance: METOCLOPRAMIDE HYDROCHLORIDE
     Dosage: DOSAGE IS UNCERTAIN.
     Route: 048
     Dates: start: 20150315, end: 20150323
  37. MAGMITT [Concomitant]
     Active Substance: MAGNESIUM OXIDE
     Dosage: DOSAGE IS UNCERTAIN.
     Route: 048
     Dates: start: 20150327, end: 20150501
  38. MAGMITT [Concomitant]
     Active Substance: MAGNESIUM OXIDE
     Dosage: DOSAGE IS UNCERTAIN.
     Route: 048
     Dates: start: 20160129, end: 20160817
  39. DENOTAS [Concomitant]
     Active Substance: CALCIUM CARBONATE\CHOLECALCIFEROL\MAGNESIUM CARBONATE
     Route: 048
     Dates: start: 2010, end: 20150314
  40. CALONAL [Concomitant]
     Active Substance: ACETAMINOPHEN
     Dosage: DOSAGE IS UNCERTAIN.
     Route: 065
     Dates: start: 20150304, end: 20150304
  41. LUNESTA [Concomitant]
     Active Substance: ESZOPICLONE
     Dosage: DOSAGE IS UNCERTAIN.
     Route: 048
     Dates: start: 20150320, end: 20151228
  42. VITAMIN C [Concomitant]
     Active Substance: ASCORBIC ACID
     Dosage: DOSAGE IS UNCERTAIN.
     Route: 065
     Dates: start: 20150314, end: 20150323
  43. PROEMEND [Concomitant]
     Active Substance: FOSAPREPITANT
     Dosage: DOSAGE IS UNCERTAIN.
     Route: 065
     Dates: start: 20150422, end: 20150422
  44. ALOXI [Concomitant]
     Active Substance: PALONOSETRON HYDROCHLORIDE
     Dosage: DOSAGE IS UNCERTAIN.
     Route: 065
     Dates: start: 20150422, end: 20150422
  45. CRESTOR [Concomitant]
     Active Substance: ROSUVASTATIN CALCIUM
     Route: 048
     Dates: start: 2010, end: 20150314
  46. ACETOKEEP [Concomitant]
     Dosage: DOSAGE IS UNCERTAIN.
     Route: 065
     Dates: start: 20150408, end: 20150408
  47. FERROUS SULFATE. [Concomitant]
     Active Substance: FERROUS SULFATE
     Dosage: DOSAGE IS UNCERTAIN.
     Route: 065
     Dates: start: 20150503, end: 20150514
  48. DEXART [Concomitant]
     Active Substance: DEXAMETHASONE SODIUM PHOSPHATE
     Dosage: DOSAGE IS UNCERTAIN.
     Route: 065
     Dates: start: 20150305, end: 20150422
  49. VONAFEC [Concomitant]
     Active Substance: DICLOFENAC SODIUM
     Dosage: DOSAGE IS UNCERTAIN.
     Route: 054
     Dates: start: 20150304, end: 20150304
  50. LUNESTA [Concomitant]
     Active Substance: ESZOPICLONE
     Dosage: DOSAGE IS UNCERTAIN.
     Route: 048
     Dates: start: 20150314, end: 20150318
  51. SHINLUCK [Concomitant]
     Active Substance: SODIUM PICOSULFATE
     Dosage: DOSAGE IS UNCERTAIN.
     Route: 048
     Dates: start: 20150516, end: 20150624
  52. RINGER^S SOLUTION [Concomitant]
     Active Substance: RINGER^S SOLUTION
     Dosage: DOSAGE IS UNCERTAIN.
     Route: 065
     Dates: start: 20150315, end: 20150316

REACTIONS (4)
  - Pyrexia [Recovered/Resolved]
  - Periprosthetic fracture [Recovering/Resolving]
  - Decreased appetite [Recovered/Resolved]
  - Interstitial lung disease [Recovered/Resolved]

NARRATIVE: CASE EVENT DATE: 20150311
